FAERS Safety Report 6035182-1 (Version None)
Quarter: 2009Q1

REPORT INFORMATION
  Report Type: 
  Country: None (occurrence: None)
  Receive Date: 20090109
  Receipt Date: 20081223
  Transmission Date: 20090719
  Serious: Yes (Death, Other)
  Sender: FDA-Public Use
  Company Number: GXKR2008GB12260

PATIENT
  Age: 56 Year
  Sex: Female

DRUGS (10)
  1. AMOXICILLIN [Suspect]
     Indication: ENDOCARDITIS
  2. TYGACIL [Suspect]
     Indication: BACTERAEMIA
  3. TYGACIL [Suspect]
     Indication: ENDOCARDITIS
  4. TYGACIL [Suspect]
     Indication: ENTEROCOCCAL INFECTION
  5. TYGACIL [Suspect]
     Indication: INTERVERTEBRAL DISCITIS
  6. VANCOMYCIN [Suspect]
     Indication: BACTERAEMIA
  7. VANCOMYCIN [Suspect]
     Indication: ENDOCARDITIS
  8. VANCOMYCIN [Suspect]
     Indication: ENTEROCOCCAL INFECTION
  9. LINEZOLID [Concomitant]
  10. STEROIDS NOS (NO INGREDIENTS/SUBSTANCES) [Concomitant]

REACTIONS (6)
  - BACTERAEMIA [None]
  - CARDIAC FAILURE CONGESTIVE [None]
  - CLOSTRIDIUM DIFFICILE COLITIS [None]
  - DOCUMENTED HYPERSENSITIVITY TO ADMINISTERED DRUG [None]
  - DRUG INEFFECTIVE [None]
  - RENAL FAILURE ACUTE [None]
